FAERS Safety Report 10245005 (Version 1)
Quarter: 2014Q2

REPORT INFORMATION
  Report Type: Spontaneous
  Country: US (occurrence: US)
  Receive Date: 20140618
  Receipt Date: 20140618
  Transmission Date: 20141212
  Serious: No
  Sender: FDA-Public Use
  Company Number: US-GALDERMA-US14001167

PATIENT
  Age: 57 Year
  Sex: Female

DRUGS (6)
  1. MIRVASO (BRIMONIDINE) TOPICAL GEL, 0.33% [Suspect]
     Indication: ERYTHEMA
     Dosage: 0.33%
     Route: 061
     Dates: start: 20140317
  2. MIRVASO (BRIMONIDINE) TOPICAL GEL, 0.33% [Suspect]
     Dosage: 0.33%
     Route: 061
     Dates: start: 20140331
  3. CERAVE CLEANSER [Concomitant]
     Indication: THERAPEUTIC SKIN CARE TOPICAL
     Route: 061
  4. KIEHLS TINTED BB CREAM MOISTURIZER WITH SUNSCREEN [Concomitant]
     Indication: DRY SKIN PROPHYLAXIS
     Route: 061
  5. KIEHLS REDNESS REDUCING MOISTURIZER [Concomitant]
     Indication: ERYTHEMA
     Route: 061
     Dates: start: 20140327
  6. BOBBY BROWN MAKEUP FOUNDATION [Concomitant]
     Route: 061

REACTIONS (3)
  - Medication residue present [Not Recovered/Not Resolved]
  - Drug ineffective for unapproved indication [Not Recovered/Not Resolved]
  - Off label use [Recovered/Resolved]
